FAERS Safety Report 18935400 (Version 1)
Quarter: 2021Q1

REPORT INFORMATION
  Report Type: Spontaneous
  Country: DE (occurrence: DE)
  Receive Date: 20210224
  Receipt Date: 20210224
  Transmission Date: 20210420
  Serious: Yes (Other)
  Sender: FDA-Public Use
  Company Number: DE-TEVA-2021-DE-1882639

PATIENT
  Sex: Female

DRUGS (9)
  1. ONDANSETRON [Concomitant]
     Active Substance: ONDANSETRON
  2. LINEZOLID. [Concomitant]
     Active Substance: LINEZOLID
  3. AZITHROMYCIN ANHYDROUS. [Concomitant]
     Active Substance: AZITHROMYCIN ANHYDROUS
  4. PANTOPRAZOL [Concomitant]
     Active Substance: PANTOPRAZOLE SODIUM
  5. KAFTRIO 75 MG/50 MG/100 MG [Concomitant]
  6. TIGECYCLIN [Concomitant]
     Active Substance: TIGECYCLINE
  7. PREDNISOLON [Suspect]
     Active Substance: PREDNISOLONE
     Route: 065
  8. AMIKACIN. [Concomitant]
     Active Substance: AMIKACIN
  9. KALYDECO [Concomitant]
     Active Substance: IVACAFTOR

REACTIONS (1)
  - Type 1 diabetes mellitus [Unknown]
